FAERS Safety Report 8130785 (Version 4)
Quarter: 2015Q3

REPORT INFORMATION
  Report Type: Spontaneous
  Country: US (occurrence: US)
  Receive Date: 20110912
  Receipt Date: 20150915
  Transmission Date: 20151125
  Serious: Yes (Hospitalization)
  Sender: FDA-Public Use
  Company Number: US-ROCHE-796756

PATIENT
  Sex: Male

DRUGS (2)
  1. PEGASYS [Suspect]
     Active Substance: PEGINTERFERON ALFA-2A
     Indication: CHRONIC HEPATITIS C
     Route: 065
  2. RIBAVIRIN. [Suspect]
     Active Substance: RIBAVIRIN
     Indication: CHRONIC HEPATITIS C
     Dosage: IN DIVIDED DOSES, 3 RIVERS BRAND
     Route: 065

REACTIONS (12)
  - Malaise [Unknown]
  - Pyrexia [Unknown]
  - Insomnia [Unknown]
  - Nausea [Unknown]
  - Fatigue [Unknown]
  - Headache [Unknown]
  - Ear infection [Unknown]
  - Decreased appetite [Unknown]
  - Injection site discomfort [Unknown]
  - Chills [Unknown]
  - Weight decreased [Unknown]
  - Constipation [Unknown]
